FAERS Safety Report 13377790 (Version 2)
Quarter: 2017Q2

REPORT INFORMATION
  Report Type: Spontaneous
  Country: CN (occurrence: CN)
  Receive Date: 20170328
  Receipt Date: 20170413
  Transmission Date: 20170830
  Serious: Yes (Hospitalization, Other)
  Sender: FDA-Public Use
  Company Number: CN-BRISTOL-MYERS SQUIBB COMPANY-BMS-2017-024981

PATIENT
  Sex: Male

DRUGS (1)
  1. SPRYCEL [Suspect]
     Active Substance: DASATINIB
     Indication: CHRONIC MYELOID LEUKAEMIA
     Dosage: 140 MG, QD
     Route: 048
     Dates: start: 20160829

REACTIONS (7)
  - Chest discomfort [Unknown]
  - Palpitations [Unknown]
  - Transfusion [Unknown]
  - Haemoglobin decreased [Recovering/Resolving]
  - Prescribed overdose [Unknown]
  - Pyrexia [Recovering/Resolving]
  - Asthenia [Recovering/Resolving]
